FAERS Safety Report 12666179 (Version 1)
Quarter: 2016Q3

REPORT INFORMATION
  Report Type: Spontaneous
  Country: US (occurrence: US)
  Receive Date: 20160818
  Receipt Date: 20160818
  Transmission Date: 20161109
  Serious: No
  Sender: FDA-Public Use
  Company Number: US-JAZZ-2016-US-005707

PATIENT
  Sex: Female

DRUGS (36)
  1. KETOROLAC TROMETHALINE [Concomitant]
  2. VITAMIN D [Concomitant]
     Active Substance: CHOLECALCIFEROL
  3. RESTASIS [Concomitant]
     Active Substance: CYCLOSPORINE
  4. ALENDRONATE SODIUM. [Concomitant]
     Active Substance: ALENDRONATE SODIUM
  5. LASIX [Concomitant]
     Active Substance: FUROSEMIDE
  6. FLONASE [Concomitant]
     Active Substance: FLUTICASONE PROPIONATE
  7. XYREM [Suspect]
     Active Substance: SODIUM OXYBATE
     Dosage: 3 G, SECOND DOSE
     Route: 048
     Dates: start: 201006, end: 201011
  8. ASPIRIN. [Concomitant]
     Active Substance: ASPIRIN
  9. CALCIUM +D [Concomitant]
     Active Substance: CALCIUM\VITAMIN D
  10. FLONASE [Concomitant]
     Active Substance: FLUTICASONE PROPIONATE
  11. VIIBRYD [Concomitant]
     Active Substance: VILAZODONE HYDROCHLORIDE
  12. KLONOPIN [Concomitant]
     Active Substance: CLONAZEPAM
  13. XYREM [Suspect]
     Active Substance: SODIUM OXYBATE
     Indication: SOMNOLENCE
     Dosage: 4.5 G, BID
     Route: 048
     Dates: start: 200912, end: 201006
  14. ALLEGRA [Concomitant]
     Active Substance: FEXOFENADINE HYDROCHLORIDE
  15. PROVIGIL [Concomitant]
     Active Substance: MODAFINIL
  16. SOLODYN [Concomitant]
     Active Substance: MINOCYCLINE HYDROCHLORIDE
  17. TYLENOL WITH CODEINE [Concomitant]
     Active Substance: ACETAMINOPHEN\CODEINE PHOSPHATE
  18. NEXIUM [Concomitant]
     Active Substance: ESOMEPRAZOLE MAGNESIUM
  19. XYREM [Suspect]
     Active Substance: SODIUM OXYBATE
     Dosage: 5 G, FIRST DOSE
     Route: 048
     Dates: start: 201006, end: 201011
  20. CEROVITE [Concomitant]
     Active Substance: FOLIC ACID\IRON
  21. SUCRALFATE. [Concomitant]
     Active Substance: SUCRALFATE
  22. MOBIC [Concomitant]
     Active Substance: MELOXICAM
  23. CLONAZEPAM. [Concomitant]
     Active Substance: CLONAZEPAM
  24. LYRICA [Concomitant]
     Active Substance: PREGABALIN
  25. PLEXION [Concomitant]
     Active Substance: SULFACETAMIDE SODIUM\SULFUR
  26. VITAMIN B COMPLEX [Concomitant]
     Active Substance: CYANOCOBALAMIN\DEXPANTHENOL\NIACINAMIDE\PYRIDOXINE HYDROCHLORIDE\RIBOFLAVIN 5^-PHOSPHATE SODIUM\THIAMINE HYDROCHLORIDE\VITAMIN B COMPLEX
  27. MOBIC [Concomitant]
     Active Substance: MELOXICAM
  28. CEREFOLIN NAC [Concomitant]
  29. NAMENDA [Concomitant]
     Active Substance: MEMANTINE HYDROCHLORIDE
  30. TETRACYCLINE HCL [Concomitant]
     Active Substance: TETRACYCLINE HYDROCHLORIDE
  31. ZANTAC [Concomitant]
     Active Substance: RANITIDINE HYDROCHLORIDE
  32. METROGEL [Concomitant]
     Active Substance: METRONIDAZOLE
  33. XYREM [Suspect]
     Active Substance: SODIUM OXYBATE
     Dosage: 4.5 G, BID
     Route: 048
     Dates: start: 201011
  34. AUGMENTIN [Concomitant]
     Active Substance: AMOXICILLIN\CLAVULANATE POTASSIUM
  35. NUVIGIL [Concomitant]
     Active Substance: ARMODAFINIL
  36. PLAQUENIL [Concomitant]
     Active Substance: HYDROXYCHLOROQUINE SULFATE

REACTIONS (2)
  - Therapeutic response unexpected [Unknown]
  - Pre-existing condition improved [Unknown]
